FAERS Safety Report 9211920 (Version 1)
Quarter: 2013Q2

REPORT INFORMATION
  Report Type: Report from Study
  Country: US (occurrence: US)
  Receive Date: 20130404
  Receipt Date: 20130404
  Transmission Date: 20140414
  Serious: Yes (Other)
  Sender: FDA-Public Use
  Company Number: US-AMGEN-USACT2011032352

PATIENT
  Age: 93 Year
  Sex: Male

DRUGS (6)
  1. DENOSUMAB [Suspect]
     Indication: PROSTATE CANCER
     Dosage: UNK
     Dates: start: 20070301
  2. MULTIVITAMIN [Concomitant]
     Dosage: UNK UNK, QD
     Route: 048
     Dates: start: 20060501
  3. ACETAMINOPHEN [Concomitant]
     Dosage: 1300 MG, PRN
     Route: 048
     Dates: start: 20070215
  4. CALCIUM [Concomitant]
     Dosage: 600 MG, BID
     Route: 048
     Dates: start: 20070815
  5. PILOCARPINE HYDROCHLORIDE [Concomitant]
     Dosage: UNK
     Dates: start: 20080930
  6. ALBUTEROL [Concomitant]
     Dosage: 180 MUG, BID
     Dates: start: 2008

REACTIONS (1)
  - Osteonecrosis of jaw [Not Recovered/Not Resolved]
